FAERS Safety Report 22656265 (Version 1)
Quarter: 2023Q2

REPORT INFORMATION
  Report Type: Spontaneous
  Country: DE (occurrence: None)
  Receive Date: 20230629
  Receipt Date: 20230629
  Transmission Date: 20230722
  Serious: Yes (Hospitalization, Other)
  Sender: FDA-Public Use
  Company Number: 2023A148112

PATIENT

DRUGS (3)
  1. IMFINZI [Suspect]
     Active Substance: DURVALUMAB
     Indication: Bile duct cancer
     Dates: start: 20230111
  2. GEMCITABINE [Concomitant]
     Active Substance: GEMCITABINE
     Dates: start: 20230111
  3. CISPLATIN [Concomitant]
     Active Substance: CISPLATIN
     Dates: start: 20230111

REACTIONS (8)
  - Hyperglycaemia [Unknown]
  - Ketonuria [Unknown]
  - Type 1 diabetes mellitus [Unknown]
  - Asthenia [Unknown]
  - Weight decreased [Unknown]
  - Polydipsia [Unknown]
  - Respiratory tract infection [Recovered/Resolved]
  - Dyspnoea [Unknown]
